FAERS Safety Report 9035987 (Version 1)
Quarter: 2013Q1

REPORT INFORMATION
  Report Type: Report from Study
  Country: US (occurrence: US)
  Receive Date: 20130129
  Receipt Date: 20130129
  Transmission Date: 20140127
  Serious: No
  Sender: FDA-Public Use
  Company Number: US-ABBOTT-12P-163-0919148-00

PATIENT
  Age: 64 Year
  Sex: Male

DRUGS (14)
  1. HUMIRA 40 MG/0.8 ML PEN [Suspect]
     Indication: PSORIASIS
     Dates: start: 20120309
  2. ATENOLOL [Concomitant]
     Indication: HYPERTENSION
     Dosage: 50MG
  3. CRESTOR [Concomitant]
     Indication: BLOOD CHOLESTEROL INCREASED
     Dosage: 5MG DAILY
  4. HYDROCHLOROTHIAZIDE [Concomitant]
     Indication: PRODUCT USED FOR UNKNOWN INDICATION
     Dosage: 25MG DAILY
  5. FLUOXETINE [Concomitant]
     Indication: PRODUCT USED FOR UNKNOWN INDICATION
     Dosage: 20MG DAILY
  6. ICAPS [Concomitant]
     Indication: VITAMIN SUPPLEMENTATION
  7. LUTEIN [Concomitant]
     Indication: VITAMIN SUPPLEMENTATION
  8. ALLERGY PILL [Concomitant]
     Indication: PRODUCT USED FOR UNKNOWN INDICATION
     Dosage: 25MG DAILY, PILL
  9. ASPIRIN [Concomitant]
     Indication: PRODUCT USED FOR UNKNOWN INDICATION
     Dosage: 1X 30MIN. BEFORE TAKING NIASPAN
  10. NIASPAN [Concomitant]
     Indication: BLOOD CHOLESTEROL INCREASED
  11. FISH OIL [Concomitant]
     Indication: PRODUCT USED FOR UNKNOWN INDICATION
     Dosage: 1200MG DAILY
  12. VITAMIN D [Concomitant]
     Indication: PRODUCT USED FOR UNKNOWN INDICATION
     Dosage: 1000MG DAILY
  13. TRIAMCINOLONE [Concomitant]
     Indication: PRODUCT USED FOR UNKNOWN INDICATION
  14. DERMA SMOOTH [Concomitant]
     Indication: VITAMIN SUPPLEMENTATION

REACTIONS (1)
  - Drug ineffective [Not Recovered/Not Resolved]
